FAERS Safety Report 9238216 (Version 1)
Quarter: 2013Q2

REPORT INFORMATION
  Report Type: Spontaneous
  Country: GB (occurrence: GB)
  Receive Date: 20130418
  Receipt Date: 20130418
  Transmission Date: 20140414
  Serious: Yes (Other)
  Sender: FDA-Public Use
  Company Number: GB-UCBSA-083348

PATIENT
  Sex: 0

DRUGS (1)
  1. VIMPAT [Suspect]

REACTIONS (2)
  - Atrioventricular block [Unknown]
  - Syncope [Unknown]
